FAERS Safety Report 21000625 (Version 2)
Quarter: 2022Q3

REPORT INFORMATION
  Report Type: Spontaneous
  Country: JP (occurrence: JP)
  Receive Date: 20220623
  Receipt Date: 20220708
  Transmission Date: 20221027
  Serious: Yes (Other)
  Sender: FDA-Public Use
  Company Number: JP-TEVA-2022-JP-2047588

PATIENT
  Age: 88 Year
  Sex: Female

DRUGS (5)
  1. AMLODIPINE BESYLATE [Suspect]
     Active Substance: AMLODIPINE BESYLATE
     Indication: Hypertension
     Dosage: 5 MILLIGRAM DAILY;
     Route: 065
  2. ISOSORBIDE DINITRATE [Suspect]
     Active Substance: ISOSORBIDE DINITRATE
     Indication: Myocardial ischaemia
     Dosage: 40 MILLIGRAM DAILY; RETARD FORM
     Route: 065
  3. ELDECALCITOL [Suspect]
     Active Substance: ELDECALCITOL
     Indication: Vitamin supplementation
     Dosage: .75 MICROGRAM DAILY;
     Route: 065
  4. TOCOPHEROL [Suspect]
     Active Substance: TOCOPHEROL
     Indication: Myocardial ischaemia
     Dosage: 200 MILLIGRAM DAILY;
     Route: 065
  5. SENNOSIDES [Suspect]
     Active Substance: SENNOSIDES
     Indication: Constipation
     Dosage: 36 MILLIGRAM DAILY;
     Route: 065

REACTIONS (4)
  - Hypercalcaemia [Recovered/Resolved]
  - Renal impairment [Recovered/Resolved]
  - Cognitive disorder [Recovering/Resolving]
  - Delirium [Recovering/Resolving]
